FAERS Safety Report 9835240 (Version 3)
Quarter: 2014Q2

REPORT INFORMATION
  Report Type: Spontaneous
  Country: US (occurrence: US)
  Receive Date: 20140122
  Receipt Date: 20140424
  Transmission Date: 20141212
  Serious: No
  Sender: FDA-Public Use
  Company Number: US-BRISTOL-MYERS SQUIBB COMPANY-19884105

PATIENT
  Sex: Female

DRUGS (1)
  1. ELIQUIS [Suspect]
     Dosage: THE PATIENT TOOK ONLY 3 DOSES

REACTIONS (1)
  - Mental status changes [Recovered/Resolved]
